FAERS Safety Report 6057009-4 (Version None)
Quarter: 2009Q1

REPORT INFORMATION
  Report Type: 
  Country: None (occurrence: None)
  Receive Date: 20090127
  Receipt Date: 20090127
  Transmission Date: 20090719
  Serious: Yes (Life-Threatening, Hospitalization)
  Sender: FDA-Public Use
  Company Number: None

PATIENT
  Age: 71 Year
  Sex: Female

DRUGS (1)
  1. ISOVUE-300 [Suspect]
     Indication: COMPUTERISED TOMOGRAM
     Dosage: 100ML ONE TIME IV BOLUS
     Route: 040
     Dates: start: 20080408, end: 20080408

REACTIONS (6)
  - ACIDOSIS [None]
  - CARDIAC ARREST [None]
  - HYPOTENSION [None]
  - PRURITUS [None]
  - PULSE ABSENT [None]
  - UNRESPONSIVE TO STIMULI [None]
